FAERS Safety Report 22976588 (Version 2)
Quarter: 2023Q4

REPORT INFORMATION
  Report Type: Spontaneous
  Country: US (occurrence: None)
  Receive Date: 20230925
  Receipt Date: 20231113
  Transmission Date: 20240110
  Serious: Yes (Other)
  Sender: FDA-Public Use
  Company Number: US-ROCHE-3425297

PATIENT
  Age: 15 Year
  Sex: Female

DRUGS (2)
  1. TAMIFLU [Suspect]
     Active Substance: OSELTAMIVIR PHOSPHATE
     Indication: Influenza
     Route: 048
  2. BROMFED DM [Suspect]
     Active Substance: BROMPHENIRAMINE MALEATE\DEXTROMETHORPHAN HYDROBROMIDE\PSEUDOEPHEDRINE HYDROCHLORIDE
     Indication: Product used for unknown indication
     Dosage: EVERY 4-6 HOURS, CONCENTRATION WAS 30-10MG/5 ML.
     Route: 048

REACTIONS (6)
  - Emotional distress [Unknown]
  - Anxiety [Unknown]
  - Deformity [Unknown]
  - Psychotic disorder [Unknown]
  - Personality change [Unknown]
  - Cognitive disorder [Unknown]

NARRATIVE: CASE EVENT DATE: 20190101
